FAERS Safety Report 9213449 (Version 1)
Quarter: 2013Q2

REPORT INFORMATION
  Report Type: Spontaneous
  Country: US (occurrence: US)
  Receive Date: 20130405
  Receipt Date: 20130405
  Transmission Date: 20140414
  Serious: No
  Sender: FDA-Public Use
  Company Number: US-PFIZER INC-2013104614

PATIENT
  Age: 75 Year
  Sex: Male
  Weight: 99.77 kg

DRUGS (7)
  1. TIKOSYN [Suspect]
     Indication: CARDIAC DISORDER
     Dosage: 250 UG, TWICE A DAY
     Route: 048
     Dates: start: 201211
  2. ATORVASTATIN CALCIUM [Suspect]
     Indication: BLOOD CHOLESTEROL
     Dosage: 10 MG, DAILY
     Route: 048
     Dates: start: 201302
  3. DIGOXIN [Suspect]
     Indication: ATRIAL FIBRILLATION
     Dosage: 0.125 MG, DAILY
     Route: 048
     Dates: start: 201211
  4. MAGNESIUM [Suspect]
     Indication: CARDIAC DISORDER
     Dosage: 350 MG, TWICE A DAY
     Route: 048
     Dates: start: 201211
  5. CARVEDILOL [Suspect]
     Indication: ATRIAL FIBRILLATION
     Dosage: 3.125 MG, TWICE A DAY
     Route: 048
     Dates: start: 201211
  6. XARELTO [Suspect]
     Indication: CEREBROVASCULAR ACCIDENT PROPHYLAXIS
     Dosage: 20 MG, DAILY
     Route: 048
     Dates: start: 201211
  7. XARELTO [Suspect]
     Indication: ATRIAL FIBRILLATION

REACTIONS (2)
  - Epistaxis [Not Recovered/Not Resolved]
  - Blood glucose increased [Unknown]
